FAERS Safety Report 8314048-8 (Version None)
Quarter: 2012Q2

REPORT INFORMATION
  Report Type: 
  Country: None (occurrence: None)
  Receive Date: 20120426
  Receipt Date: 20120417
  Transmission Date: 20120825
  Serious: Yes (Hospitalization, Other)
  Sender: FDA-Public Use
  Company Number: US-SANOFI-AVENTIS-2012SA019534

PATIENT
  Sex: Female

DRUGS (7)
  1. VALSARTAN [Concomitant]
     Indication: BLOOD PRESSURE
     Route: 048
  2. AMBIEN CR [Suspect]
     Indication: INSOMNIA
     Route: 048
  3. ALL OTHER THERAPEUTIC PRODUCTS [Concomitant]
     Indication: INSOMNIA
  4. SYNTHROID [Concomitant]
  5. NEBIVOLOL [Concomitant]
     Dates: end: 20120301
  6. AMLODIPINE [Concomitant]
     Dosage: 2.5
  7. AMBIEN [Suspect]
     Indication: INSOMNIA
     Dates: start: 20040101

REACTIONS (8)
  - CONDITION AGGRAVATED [None]
  - MUSCLE ATROPHY [None]
  - FIBROMYALGIA [None]
  - RAYNAUD'S PHENOMENON [None]
  - WEIGHT DECREASED [None]
  - HELICOBACTER INFECTION [None]
  - DIARRHOEA [None]
  - GASTROINTESTINAL ULCER [None]
